FAERS Safety Report 12566980 (Version 1)
Quarter: 2016Q3

REPORT INFORMATION
  Report Type: Spontaneous
  Country: BR (occurrence: BR)
  Receive Date: 20160718
  Receipt Date: 20160718
  Transmission Date: 20161109
  Serious: Yes (Other)
  Sender: FDA-Public Use
  Company Number: PHHY2016BR097304

PATIENT
  Sex: Female
  Weight: 50 kg

DRUGS (4)
  1. ILARIS [Suspect]
     Active Substance: CANAKINUMAB
     Indication: PERICARDITIS
     Dosage: 150 MG, EVERY 4 WEEKS
     Route: 058
     Dates: start: 201606
  2. PREDNISONE. [Concomitant]
     Active Substance: PREDNISONE
     Indication: FAMILIAL MEDITERRANEAN FEVER
     Dosage: 20 MG, QD
     Route: 058
     Dates: start: 201510
  3. ILARIS [Suspect]
     Active Substance: CANAKINUMAB
     Indication: FAMILIAL MEDITERRANEAN FEVER
     Dosage: 150 MG, QD
     Route: 058
     Dates: start: 2015
  4. PREDNISONE. [Concomitant]
     Active Substance: PREDNISONE
     Indication: PERICARDITIS
     Dosage: 15 MG, QD
     Route: 048
     Dates: start: 201605

REACTIONS (6)
  - Chest pain [Unknown]
  - Malaise [Unknown]
  - Pericarditis [Unknown]
  - Pyrexia [Unknown]
  - Dyspnoea [Unknown]
  - Product use issue [Unknown]

NARRATIVE: CASE EVENT DATE: 2015
